FAERS Safety Report 5090238-5 (Version None)
Quarter: 2006Q3

REPORT INFORMATION
  Report Type: 
  Country: None (occurrence: None)
  Receive Date: 20060828
  Receipt Date: 20060621
  Transmission Date: 20061208
  Serious: No
  Sender: FDA-Public Use
  Company Number: US-GLAXOSMITHKLINE-A0609853A

PATIENT
  Age: 75 Year
  Sex: Male
  Weight: 90.9 kg

DRUGS (4)
  1. WELLBUTRIN XL [Suspect]
     Indication: DEPRESSION
     Dosage: 75MG PER DAY
     Route: 048
     Dates: start: 20060519
  2. LIPITOR [Concomitant]
  3. PROTONIX [Concomitant]
  4. REMERON [Concomitant]

REACTIONS (13)
  - ABDOMINAL PAIN [None]
  - ANOREXIA [None]
  - ANXIETY [None]
  - HEART RATE INCREASED [None]
  - HYPERHIDROSIS [None]
  - HYPERTENSION [None]
  - INSOMNIA [None]
  - MOOD SWINGS [None]
  - MUSCLE TWITCHING [None]
  - PRURITUS [None]
  - RASH [None]
  - SKIN ULCER [None]
  - TREMOR [None]
